FAERS Safety Report 25142319 (Version 1)
Quarter: 2025Q1

REPORT INFORMATION
  Report Type: Spontaneous
  Country: PL (occurrence: PL)
  Receive Date: 20250331
  Receipt Date: 20250331
  Transmission Date: 20250409
  Serious: Yes (Hospitalization)
  Sender: B BRAUN
  Company Number: PL-B.Braun Medical Inc.-2173972

PATIENT
  Age: 26 Year
  Sex: Female

DRUGS (15)
  1. ACETAMINOPHEN [Suspect]
     Active Substance: ACETAMINOPHEN
     Indication: Persistent genital arousal disorder
  2. AMOXICILLIN SODIUM [Suspect]
     Active Substance: AMOXICILLIN SODIUM
  3. SERTRALINE [Concomitant]
     Active Substance: SERTRALINE HYDROCHLORIDE
  4. TIANEPTINE [Suspect]
     Active Substance: TIANEPTINE
  5. NATAMYCIN [Suspect]
     Active Substance: NATAMYCIN
  6. ACETAMINOPHEN AND CODEINE [Suspect]
     Active Substance: ACETAMINOPHEN\CODEINE PHOSPHATE
  7. IBUPROFEN [Suspect]
     Active Substance: IBUPROFEN
  8. HYDROXYZINE [Suspect]
     Active Substance: HYDROXYZINE HYDROCHLORIDE
  9. GENTAMICIN [Suspect]
     Active Substance: GENTAMICIN
  10. FURAZIDINE [Suspect]
     Active Substance: FURAZIDINE
  11. FLUCONAZOLE [Suspect]
     Active Substance: FLUCONAZOLE
  12. CLOTRIMAZOLE [Suspect]
     Active Substance: CLOTRIMAZOLE
  13. CIPROFLOXACIN [Suspect]
     Active Substance: CIPROFLOXACIN
  14. CETIRIZINE [Suspect]
     Active Substance: CETIRIZINE HYDROCHLORIDE
  15. ALPRAZOLAM [Suspect]
     Active Substance: ALPRAZOLAM

REACTIONS (2)
  - Persistent genital arousal disorder [Recovered/Resolved]
  - Condition aggravated [Recovered/Resolved]
